FAERS Safety Report 11445959 (Version 2)
Quarter: 2015Q3

REPORT INFORMATION
  Report Type: Spontaneous
  Country: FR (occurrence: FR)
  Receive Date: 20150902
  Receipt Date: 20150904
  Transmission Date: 20151125
  Serious: Yes (Hospitalization, Other)
  Sender: FDA-Public Use
  Company Number: FR-PFIZER INC-2015287726

PATIENT
  Age: 61 Year
  Sex: Male

DRUGS (7)
  1. LYRICA [Suspect]
     Active Substance: PREGABALIN
     Dosage: 50 MG, DAILY
     Dates: start: 20150430
  2. LANSOPRAZOLE. [Concomitant]
     Active Substance: LANSOPRAZOLE
     Dosage: UNK
     Dates: start: 20150430
  3. DOLIPRANE [Concomitant]
     Active Substance: ACETAMINOPHEN
     Dosage: UNK
     Dates: start: 20150430
  4. LYRICA [Suspect]
     Active Substance: PREGABALIN
     Dosage: 25 MG, 2X/DAY
     Route: 048
     Dates: start: 20150509, end: 20150511
  5. TRAMADOL. [Suspect]
     Active Substance: TRAMADOL
     Dosage: 100 MG, 2X/DAY
     Route: 048
     Dates: start: 20150509, end: 20150511
  6. VOLTARENE [Concomitant]
     Active Substance: DICLOFENAC SODIUM
     Dosage: 150 MG, DAILY
     Dates: start: 20150430
  7. TRAMADOL. [Suspect]
     Active Substance: TRAMADOL
     Dosage: UNK
     Dates: start: 20150430

REACTIONS (8)
  - Aphasia [Recovered/Resolved]
  - Confusional state [Recovered/Resolved]
  - Monoparesis [Unknown]
  - Sluggishness [Unknown]
  - Dyspraxia [Unknown]
  - Mental impairment [Unknown]
  - Disorientation [Unknown]
  - Transient ischaemic attack [Unknown]

NARRATIVE: CASE EVENT DATE: 20150504
